FAERS Safety Report 10894194 (Version 3)
Quarter: 2015Q2

REPORT INFORMATION
  Report Type: Spontaneous
  Country: US (occurrence: US)
  Receive Date: 20150306
  Receipt Date: 20150511
  Transmission Date: 20150821
  Serious: No
  Sender: FDA-Public Use
  Company Number: US-009507513-1503USA001904

PATIENT
  Age: 54 Year
  Sex: Male
  Weight: 83.45 kg

DRUGS (2)
  1. ALLEGRA [Concomitant]
     Active Substance: FEXOFENADINE HYDROCHLORIDE
     Dosage: 180 MG, QD
     Dates: start: 201502, end: 201502
  2. GRASTEK [Suspect]
     Active Substance: PHLEUM PRATENSE POLLEN
     Indication: RHINITIS ALLERGIC
     Dosage: 2800 BAU, QD
     Route: 060
     Dates: start: 20150204, end: 20150219

REACTIONS (3)
  - Oropharyngeal discomfort [Recovered/Resolved]
  - Sensation of foreign body [Recovered/Resolved]
  - Throat tightness [Recovered/Resolved]

NARRATIVE: CASE EVENT DATE: 20150204
